FAERS Safety Report 24814836 (Version 1)
Quarter: 2025Q1

REPORT INFORMATION
  Report Type: Spontaneous
  Country: US (occurrence: None)
  Receive Date: 20250106
  Receipt Date: 20250106
  Transmission Date: 20250409
  Serious: Yes (Life-Threatening, Disabling, Other)
  Sender: FDA-CTU
  Company Number: None

PATIENT
  Age: 64 Year
  Sex: Female
  Weight: 72 kg

DRUGS (2)
  1. XOLAIR [Suspect]
     Active Substance: OMALIZUMAB
     Indication: Anaphylactic reaction
     Dates: start: 20240501, end: 20250106
  2. Lantanaprost [Concomitant]

REACTIONS (2)
  - Bladder cancer [None]
  - Urinary tract infection [None]

NARRATIVE: CASE EVENT DATE: 20241210
